FAERS Safety Report 5685322-9 (Version None)
Quarter: 2008Q1

REPORT INFORMATION
  Report Type: 
  Country: None (occurrence: None)
  Receive Date: 20080328
  Receipt Date: 20080317
  Transmission Date: 20080703
  Serious: Yes (Other)
  Sender: FDA-Public Use
  Company Number: GB-PFIZER INC-2008024758

PATIENT
  Sex: Female

DRUGS (1)
  1. NEURONTIN [Suspect]
     Indication: NEURALGIA

REACTIONS (9)
  - BALANCE DISORDER [None]
  - DEPRESSION [None]
  - DISTURBANCE IN ATTENTION [None]
  - DYSKINESIA [None]
  - FATIGUE [None]
  - MALAISE [None]
  - MEMORY IMPAIRMENT [None]
  - VERTIGO [None]
  - WEIGHT INCREASED [None]
